FAERS Safety Report 6583501-X (Version None)
Quarter: 2010Q1

REPORT INFORMATION
  Report Type: 
  Country: None (occurrence: None)
  Receive Date: 20100216
  Receipt Date: 20100203
  Transmission Date: 20100710
  Serious: Yes (Other)
  Sender: FDA-Public Use
  Company Number: PHHY2010US06280

PATIENT
  Age: 75 Year
  Sex: Female

DRUGS (1)
  1. RECLAST [Suspect]

REACTIONS (3)
  - BONE PAIN [None]
  - HIP FRACTURE [None]
  - PAIN [None]
